FAERS Safety Report 11741488 (Version 1)
Quarter: 2015Q4

REPORT INFORMATION
  Report Type: Spontaneous
  Country: US (occurrence: None)
  Receive Date: 20151112
  Receipt Date: 20151112
  Transmission Date: 20160304
  Serious: Yes (Life-Threatening, Other)
  Sender: FDA-Public Use
  Company Number: 201511-US-002139

PATIENT
  Age: 3 Year
  Sex: Female

DRUGS (2)
  1. PEDIA-LAX (MAGNESIUM HYDROXIDE) [Suspect]
     Active Substance: MAGNESIUM HYDROXIDE
     Indication: CONSTIPATION
     Dosage: 400 MILLIGRAM, 1 IN 24 HOURS
     Route: 048
     Dates: start: 20151014, end: 20151014
  2. OMNICEF [Concomitant]
     Active Substance: CEFDINIR

REACTIONS (9)
  - Stridor [None]
  - Oropharyngeal pain [None]
  - Periorbital oedema [None]
  - Eyelid oedema [None]
  - Hypersensitivity [None]
  - Skin discolouration [None]
  - Food allergy [None]
  - Pharyngeal oedema [None]
  - Cough [None]

NARRATIVE: CASE EVENT DATE: 20151014
